FAERS Safety Report 13126650 (Version 1)
Quarter: 2017Q1

REPORT INFORMATION
  Report Type: Spontaneous
  Country: ES (occurrence: ES)
  Receive Date: 20170118
  Receipt Date: 20170118
  Transmission Date: 20170428
  Serious: Yes (Other)
  Sender: FDA-Public Use
  Company Number: ES-AMGEN-ESPSP2017006516

PATIENT
  Age: 81 Year
  Sex: Female

DRUGS (3)
  1. LACOSAMIDA [Concomitant]
  2. NOIAFREN [Concomitant]
     Active Substance: CLOBAZAM
  3. PROLIA [Suspect]
     Active Substance: DENOSUMAB
     Indication: OSTEOPOROSIS
     Dosage: UNK
     Route: 065
     Dates: start: 201611

REACTIONS (1)
  - Petit mal epilepsy [Recovered/Resolved]
